FAERS Safety Report 5334314-8 (Version None)
Quarter: 2007Q2

REPORT INFORMATION
  Report Type: 
  Country: None (occurrence: None)
  Receive Date: 20070522
  Receipt Date: 20070511
  Transmission Date: 20071010
  Serious: Yes (Hospitalization)
  Sender: FDA-Public Use
  Company Number: 155323USA

PATIENT
  Age: 75 Year
  Sex: Male
  Weight: 79.3795 kg

DRUGS (10)
  1. AZILECT [Suspect]
     Dosage: (1 MG), ORAL
     Route: 048
     Dates: start: 20070301, end: 20070414
  2. ACETYLSALICYLIC ACID SRT [Concomitant]
  3. ESOMEPRAZOLE MAGNESIUM [Concomitant]
  4. LISINOPRIL [Concomitant]
  5. ATENOLOL [Concomitant]
  6. FINASTERIDE [Concomitant]
  7. MORNIFLUMATE [Concomitant]
  8. ALFUZOSIN HYDROCHLORIDE [Concomitant]
  9. VITAMIN CAP [Concomitant]
  10. VITAMIN C AND E [Concomitant]

REACTIONS (4)
  - BENIGN PROSTATIC HYPERPLASIA [None]
  - BLOOD URINE PRESENT [None]
  - URINARY RETENTION [None]
  - URINARY TRACT INFECTION [None]
